FAERS Safety Report 6004232-0 (Version None)
Quarter: 2008Q4

REPORT INFORMATION
  Report Type: 
  Country: None (occurrence: None)
  Receive Date: 20081216
  Receipt Date: 20081208
  Transmission Date: 20090506
  Serious: Yes (Hospitalization)
  Sender: FDA-Public Use
  Company Number: US-BIOGENIDEC-2008BI033281

PATIENT
  Age: 31 Year
  Sex: Female

DRUGS (2)
  1. AVONEX [Suspect]
     Indication: MULTIPLE SCLEROSIS
     Route: 030
     Dates: start: 20081009
  2. WHOLE HOST OF PILLS (NOS) [Concomitant]
     Indication: DRUG USE FOR UNKNOWN INDICATION

REACTIONS (6)
  - ALTERED VISUAL DEPTH PERCEPTION [None]
  - DIPLOPIA [None]
  - DYSKINESIA [None]
  - FATIGUE [None]
  - LOSS OF CONTROL OF LEGS [None]
  - TREMOR [None]
